FAERS Safety Report 4269555-4 (Version None)
Quarter: 2004Q1

REPORT INFORMATION
  Report Type: 
  Country: None (occurrence: None)
  Receive Date: 20040113
  Receipt Date: 20031030
  Transmission Date: 20041129
  Serious: Yes (Other)
  Sender: FDA-Public Use
  Company Number: US-BRISTOL-MYERS SQUIBB COMPANY-12422648

PATIENT
  Age: 60 Year
  Sex: Female
  Weight: 82 kg

DRUGS (17)
  1. CARBOPLATIN [Suspect]
     Indication: OVARIAN CANCER
     Dosage: STOCK FROM ^OTN^
     Route: 042
     Dates: start: 20030902, end: 20030902
  2. TAXOL [Concomitant]
     Indication: OVARIAN CANCER
     Route: 042
     Dates: start: 20030902, end: 20030902
  3. BENADRYL [Concomitant]
     Indication: PREMEDICATION
     Route: 042
     Dates: start: 20030902, end: 20030902
  4. ZANTAC [Concomitant]
     Indication: PREMEDICATION
     Route: 042
  5. ZOFRAN [Concomitant]
     Indication: PREMEDICATION
     Route: 042
     Dates: start: 20030902, end: 20030902
  6. DEXAMETHASONE [Concomitant]
     Indication: PREMEDICATION
     Route: 042
     Dates: start: 20030902, end: 20030902
  7. ARANESP [Concomitant]
     Route: 058
     Dates: start: 20030902, end: 20030902
  8. ALDACTAZIDE [Concomitant]
     Dosage: 25+25
  9. LODINE [Concomitant]
     Dosage: OR 4 PRN
  10. CLARINEX [Concomitant]
  11. FLONASE [Concomitant]
  12. K-DUR 10 [Concomitant]
     Dosage: FOR LAST WEEK, 2 @THREE TIMES DAILY
  13. MAGNESIUM [Concomitant]
  14. VITAMIN D [Concomitant]
  15. NEXIUM [Concomitant]
  16. COLACE [Concomitant]
  17. PHAZYME [Concomitant]

REACTIONS (7)
  - BLOOD PRESSURE DECREASED [None]
  - CYANOSIS [None]
  - DYSPNOEA [None]
  - ERYTHEMA [None]
  - HEART RATE INCREASED [None]
  - HYPERSENSITIVITY [None]
  - SWELLING FACE [None]
